FAERS Safety Report 9705980 (Version 2)
Quarter: 2013Q4

REPORT INFORMATION
  Report Type: Spontaneous
  Country: JP (occurrence: JP)
  Receive Date: 20131122
  Receipt Date: 20131231
  Transmission Date: 20140711
  Serious: Yes (Other)
  Sender: FDA-Public Use
  Company Number: JP-PFIZER INC-2013331633

PATIENT
  Age: 80 Year
  Sex: Female

DRUGS (5)
  1. ATARAX-P [Suspect]
     Dosage: 25 MG, 1X/DAY
     Route: 048
     Dates: start: 20131115
  2. SERENACE [Suspect]
     Dosage: 5 MG, DAILY
     Route: 041
     Dates: start: 20131117, end: 20131119
  3. THEO-DUR [Concomitant]
     Dosage: 100 MG, DAILY
     Route: 048
  4. BROTIZOLAM [Concomitant]
     Dosage: 0.25 MG, DAILY
     Route: 048
  5. AMLODIN OD [Concomitant]
     Dosage: 5 MG, DAILY
     Route: 048

REACTIONS (1)
  - Urinary retention [Recovering/Resolving]
